FAERS Safety Report 5721411-8 (Version None)
Quarter: 2008Q2

REPORT INFORMATION
  Report Type: 
  Country: None (occurrence: None)
  Receive Date: 20080428
  Receipt Date: 20080428
  Transmission Date: 20081010
  Serious: Yes (Other)
  Sender: FDA-Public Use
  Company Number: None

PATIENT
  Sex: Male
  Weight: 111.1313 kg

DRUGS (6)
  1. LIPITOR [Suspect]
     Indication: HYPERLIPIDAEMIA
     Dosage: 40MG DAILY PO
     Route: 048
     Dates: start: 20051110, end: 20080425
  2. NIASPAN [Concomitant]
  3. TOPROL-XL [Concomitant]
  4. ASCORBIC ACID [Concomitant]
  5. MULTI-VITAMIN [Concomitant]
  6. LISINOPRIL [Concomitant]

REACTIONS (9)
  - AGGRESSION [None]
  - COGNITIVE DISORDER [None]
  - DEPRESSION [None]
  - DISTURBANCE IN ATTENTION [None]
  - FRUSTRATION [None]
  - IMPAIRED DRIVING ABILITY [None]
  - IMPATIENCE [None]
  - MOOD ALTERED [None]
  - VIOLENCE-RELATED SYMPTOM [None]
